FAERS Safety Report 4360807-6 (Version None)
Quarter: 2004Q2

REPORT INFORMATION
  Report Type: 
  Country: None (occurrence: None)
  Receive Date: 20040517
  Receipt Date: 20040504
  Transmission Date: 20050107
  Serious: Yes (Other)
  Sender: FDA-Public Use
  Company Number: 028-20785-04050091

PATIENT
  Age: 78 Year
  Sex: Male

DRUGS (2)
  1. THALOMID [Suspect]
     Indication: MULTIPLE MYELOMA
     Dosage: 200 MG, DAILY, ORAL
     Route: 048
  2. PREDNISONE [Suspect]
     Dosage: 25 MG, DAILY, ORAL
     Route: 048

REACTIONS (1)
  - CUSHING'S SYNDROME [None]
